FAERS Safety Report 6984592-4 (Version None)
Quarter: 2010Q3

REPORT INFORMATION
  Report Type: 
  Country: None (occurrence: None)
  Receive Date: 20100915
  Receipt Date: 20100907
  Transmission Date: 20110219
  Serious: Yes (Hospitalization)
  Sender: FDA-Public Use
  Company Number: FR-PFIZER INC-2010044920

PATIENT
  Age: 83 Year
  Sex: Male

DRUGS (2)
  1. TAHOR [Suspect]
     Dosage: 10 MG, 1X/DAY
     Route: 048
     Dates: start: 20100317, end: 20100323
  2. ENALAPRIL MALEATE [Suspect]
     Dosage: 2.5 MG, 1X/DAY
     Route: 048
     Dates: start: 20100317, end: 20100323

REACTIONS (1)
  - THROMBOCYTOPENIA [None]
